FAERS Safety Report 8427290-2 (Version None)
Quarter: 2012Q2

REPORT INFORMATION
  Report Type: 
  Country: None (occurrence: None)
  Receive Date: 20120611
  Receipt Date: 20120605
  Transmission Date: 20120825
  Serious: Yes (Hospitalization)
  Sender: FDA-Public Use
  Company Number: JP-GLAXOSMITHKLINE-B0806801A

PATIENT
  Sex: Female

DRUGS (3)
  1. TAXOL [Concomitant]
     Route: 042
  2. CARBOPLATIN [Concomitant]
     Route: 042
  3. ZANTAC [Suspect]
     Indication: PREMEDICATION
     Dosage: 50MG PER DAY
     Route: 042
     Dates: start: 20120514

REACTIONS (7)
  - HYPOAESTHESIA [None]
  - PARKINSONISM [None]
  - ILEUS PARALYTIC [None]
  - INJECTION SITE VESICLES [None]
  - TREMOR [None]
  - DYSARTHRIA [None]
  - RASH [None]
